FAERS Safety Report 7804797-X (Version None)
Quarter: 2011Q4

REPORT INFORMATION
  Report Type: 
  Country: None (occurrence: None)
  Receive Date: 20111010
  Receipt Date: 20110929
  Transmission Date: 20120403
  Serious: Yes (Hospitalization)
  Sender: FDA-Public Use
  Company Number: CA-JNJFOC-20110906654

PATIENT
  Sex: Male
  Weight: 61 kg

DRUGS (7)
  1. SOLU-CORTEF [Concomitant]
     Indication: PREMEDICATION
     Route: 042
  2. IMURAN [Concomitant]
     Route: 065
  3. REMICADE [Suspect]
     Indication: CROHN'S DISEASE
     Route: 042
  4. REMICADE [Suspect]
     Route: 042
     Dates: start: 20080104, end: 20110805
  5. TYLENOL-500 [Concomitant]
     Indication: PREMEDICATION
     Route: 048
  6. BENADRYL [Concomitant]
     Indication: PREMEDICATION
     Route: 048
  7. FOLIC ACID [Concomitant]
     Route: 065

REACTIONS (4)
  - WEIGHT DECREASED [None]
  - VOMITING [None]
  - PNEUMONIA [None]
  - BODY TEMPERATURE INCREASED [None]
